FAERS Safety Report 17001494 (Version 14)
Quarter: 2020Q1

REPORT INFORMATION
  Report Type: Report from Study
  Country: JP (occurrence: JP)
  Receive Date: 20191106
  Receipt Date: 20200311
  Transmission Date: 20200409
  Serious: Yes (Hospitalization)
  Sender: FDA-Public Use
  Company Number: JP-EISAI MEDICAL RESEARCH-EC-2019-064738

PATIENT
  Age: 70 Year
  Sex: Male
  Weight: 63.8 kg

DRUGS (15)
  1. MEDICON [Concomitant]
     Active Substance: DEXTROMETHORPHAN HYDROBROMIDE
     Dates: start: 20190801, end: 20191227
  2. ONBREZ [Concomitant]
     Active Substance: INDACATEROL
     Dates: start: 20190809, end: 20191227
  3. TELTHIA COMBINATION DSEP [Concomitant]
     Dates: start: 20191018, end: 20200212
  4. PEMBROLIZUMAB. [Suspect]
     Active Substance: PEMBROLIZUMAB
     Route: 041
     Dates: start: 20191017, end: 20191017
  5. CARBOCYSTEINE [Concomitant]
     Active Substance: CARBOCYSTEINE
     Dates: start: 20190801, end: 20200303
  6. PEMBROLIZUMAB. [Suspect]
     Active Substance: PEMBROLIZUMAB
     Indication: NON-SMALL CELL LUNG CANCER
     Route: 041
     Dates: start: 20190904, end: 20190926
  7. AMLODIPINE BESYLATE. [Concomitant]
     Active Substance: AMLODIPINE BESYLATE
     Dates: start: 20190927, end: 20200212
  8. CALONAL [Concomitant]
     Active Substance: ACETAMINOPHEN
     Dates: start: 20190809, end: 20200224
  9. LENVATINIB [Suspect]
     Active Substance: LENVATINIB
     Indication: NON-SMALL CELL LUNG CANCER
     Route: 048
     Dates: start: 20190904, end: 20191031
  10. BEZAFIBRATE [Concomitant]
     Active Substance: BEZAFIBRATE
     Dates: start: 201001, end: 20191120
  11. STAYBLA [Concomitant]
     Active Substance: IMIDAFENACIN
     Dates: start: 201001, end: 20200303
  12. THYRADIN-S [Concomitant]
     Active Substance: LEVOTHYROXINE
     Dates: start: 20190925, end: 20200303
  13. MEPTIN [Concomitant]
     Active Substance: PROCATEROL HYDROCHLORIDE
     Dates: start: 20191011, end: 20191107
  14. OLMESARTAN MEDOXOMIL. [Concomitant]
     Active Substance: OLMESARTAN MEDOXOMIL
     Dates: start: 20190927, end: 20191017
  15. CELECOX [Concomitant]
     Active Substance: CELECOXIB
     Dates: start: 20191011, end: 20200303

REACTIONS (3)
  - Decreased appetite [Recovered/Resolved]
  - Pneumonia [Recovered/Resolved]
  - Chronic obstructive pulmonary disease [Recovered/Resolved]

NARRATIVE: CASE EVENT DATE: 20191025
